FAERS Safety Report 16384935 (Version 1)
Quarter: 2019Q2

REPORT INFORMATION
  Report Type: Spontaneous
  Country: US (occurrence: US)
  Receive Date: 20190426
  Receipt Date: 20190426
  Transmission Date: 20190711
  Serious: No
  Sender: FDA-Public Use
  Company Number: None

PATIENT
  Age: 54 Year
  Sex: Male

DRUGS (2)
  1. TRAMADOL. [Concomitant]
     Active Substance: TRAMADOL
  2. H.P. ACTHAR [Suspect]
     Active Substance: CORTICOTROPIN
     Indication: HAEMATURIA
     Route: 058
     Dates: start: 20180712, end: 20190426

REACTIONS (1)
  - Hypertension [None]

NARRATIVE: CASE EVENT DATE: 20190426
